FAERS Safety Report 8847864 (Version 4)
Quarter: 2012Q4

REPORT INFORMATION
  Report Type: Report from Study
  Country: US (occurrence: US)
  Receive Date: 20121018
  Receipt Date: 20121102
  Transmission Date: 20130627
  Serious: No
  Sender: FDA-Public Use
  Company Number: US-VERTEX PHARMACEUTICAL INC.-2012-022889

PATIENT
  Age: 58 None
  Sex: Male
  Weight: 70 kg

DRUGS (7)
  1. VX-950 [Suspect]
     Indication: HEPATITIS C
     Dosage: 750 mg, tid
     Route: 048
     Dates: start: 20120928
  2. PEGASYS [Suspect]
     Indication: HEPATITIS C
     Dosage: 180 ?g, weekly
     Route: 058
     Dates: start: 20120928
  3. RIBAVIRIN [Suspect]
     Indication: HEPATITIS C
     Dosage: 600 mg, bid
     Route: 048
     Dates: start: 20120928
  4. ATENOLOL [Concomitant]
     Dosage: 25 mg, UNK
  5. LISINOPRIL [Concomitant]
     Indication: HYPERTENSION
     Dosage: 10 mg, UNK
  6. PRILOSEC                           /00661201/ [Concomitant]
     Dosage: 20 mg, UNK
  7. TYLENOL PM [Concomitant]

REACTIONS (9)
  - Sinus disorder [Recovered/Resolved]
  - Sinusitis [Recovered/Resolved]
  - Headache [Recovered/Resolved]
  - Sinus congestion [Recovered/Resolved]
  - Eye pain [Recovered/Resolved]
  - Epistaxis [Recovered/Resolved]
  - Dry skin [Unknown]
  - Fatigue [Not Recovered/Not Resolved]
  - Rash pruritic [Unknown]
